FAERS Safety Report 19381399 (Version 3)
Quarter: 2021Q4

REPORT INFORMATION
  Report Type: Report from Study
  Country: US (occurrence: US)
  Receive Date: 20210607
  Receipt Date: 20211115
  Transmission Date: 20220303
  Serious: No
  Sender: FDA-Public Use
  Company Number: NVSC2021US127298

PATIENT
  Age: 38 Year
  Sex: Male

DRUGS (3)
  1. KESIMPTA [Suspect]
     Active Substance: OFATUMUMAB
     Indication: Relapsing multiple sclerosis
     Dosage: 20 MG, QMO(BENEATH THE SKIN, USUALLY VIA INJECTION)
     Route: 058
     Dates: start: 20210303
  2. KESIMPTA [Suspect]
     Active Substance: OFATUMUMAB
     Indication: Secondary progressive multiple sclerosis
  3. KESIMPTA [Suspect]
     Active Substance: OFATUMUMAB
     Indication: Relapsing-remitting multiple sclerosis

REACTIONS (5)
  - Hypoaesthesia [Not Recovered/Not Resolved]
  - Influenza like illness [Unknown]
  - Pyrexia [Unknown]
  - Myalgia [Unknown]
  - Headache [Unknown]

NARRATIVE: CASE EVENT DATE: 20210317
